FAERS Safety Report 15827032 (Version 1)
Quarter: 2019Q1

REPORT INFORMATION
  Report Type: Spontaneous
  Country: US (occurrence: US)
  Receive Date: 20190115
  Receipt Date: 20190115
  Transmission Date: 20190417
  Serious: No
  Sender: FDA-Public Use
  Company Number: US-ENDO PHARMACEUTICALS INC-2018-019861

PATIENT
  Sex: Female

DRUGS (3)
  1. SYNTHROID [Concomitant]
     Active Substance: LEVOTHYROXINE SODIUM
     Indication: THYROID DISORDER
  2. CLONIDINE. [Concomitant]
     Active Substance: CLONIDINE
     Indication: BLOOD PRESSURE ABNORMAL
  3. PERCOCET [Suspect]
     Active Substance: ACETAMINOPHEN\OXYCODONE HYDROCHLORIDE
     Indication: PAIN
     Dosage: 1 TO 2 TABLETS BY MOUTH EVERY 4 HOURS AS NEEDED MAX 8 PER DAY
     Route: 048

REACTIONS (4)
  - Malaise [Unknown]
  - Blood pressure increased [Unknown]
  - Hypersensitivity [Unknown]
  - Vomiting [Unknown]

NARRATIVE: CASE EVENT DATE: 2018
